FAERS Safety Report 11443606 (Version 2)
Quarter: 2020Q3

REPORT INFORMATION
  Report Type: Spontaneous
  Country: FR (occurrence: FR)
  Receive Date: 20150901
  Receipt Date: 20200717
  Transmission Date: 20201102
  Serious: Yes (Congenital Anomaly, Other)
  Sender: FDA-Public Use
  Company Number: FR-ABBVIE-15P-056-1454126-00

PATIENT
  Sex: Female

DRUGS (1)
  1. DEPAKINE CHRONO [Suspect]
     Active Substance: VALPROATE SODIUM
     Indication: MATERNAL EXPOSURE TIMING UNSPECIFIED
     Route: 064

REACTIONS (41)
  - Carpal tunnel syndrome [Unknown]
  - Hypotonia [Unknown]
  - Limb deformity [Unknown]
  - Unevaluable event [Unknown]
  - Lordosis [Unknown]
  - Enuresis [Unknown]
  - Communication disorder [Unknown]
  - Psychomotor skills impaired [Unknown]
  - Eyelid disorder [Unknown]
  - Foetal exposure during pregnancy [Unknown]
  - Memory impairment [Unknown]
  - Emotional disorder [Unknown]
  - Cardiac murmur [Unknown]
  - Educational problem [Unknown]
  - Attention deficit hyperactivity disorder [Unknown]
  - Syndactyly [Unknown]
  - Oropharyngeal discomfort [Unknown]
  - Autism spectrum disorder [Unknown]
  - Foetal anticonvulsant syndrome [Unknown]
  - Deafness [Unknown]
  - Myopia [Unknown]
  - Mental impairment [Unknown]
  - Tympanoplasty [Unknown]
  - Sleep disorder [Unknown]
  - Fall [Unknown]
  - Osteochondritis [Unknown]
  - Disturbance in attention [Unknown]
  - Disorientation [Unknown]
  - Motor developmental delay [Unknown]
  - Hypertelorism of orbit [Unknown]
  - Congenital hand malformation [Unknown]
  - Congenital foot malformation [Unknown]
  - Gastrooesophageal reflux disease [Unknown]
  - Arthropathy [Unknown]
  - Dysmorphism [Unknown]
  - Strabismus [Unknown]
  - Cognitive disorder [Unknown]
  - Nasal disorder [Unknown]
  - Muscular weakness [Unknown]
  - Ligament sprain [Unknown]
  - Hypertrichosis [Unknown]

NARRATIVE: CASE EVENT DATE: 19870818
